FAERS Safety Report 4357775-X (Version None)
Quarter: 2004Q2

REPORT INFORMATION
  Report Type: 
  Country: None (occurrence: None)
  Receive Date: 20040512
  Receipt Date: 20040426
  Transmission Date: 20050107
  Serious: No
  Sender: FDA-Public Use
  Company Number: A0508793A

PATIENT
  Age: 50 Year
  Sex: Female

DRUGS (3)
  1. NICORETTE [Suspect]
     Indication: EX-SMOKER
     Dosage: 4 MG/ AS REQUIRED/ TRANSBUCCAL
     Route: 002
     Dates: start: 20040401
  2. ROFECOXIB [Concomitant]
  3. MINOCYCLINE HCL [Concomitant]

REACTIONS (7)
  - BONE GIANT CELL TUMOUR BENIGN [None]
  - DIFFICULTY IN WALKING [None]
  - EXCORIATION [None]
  - IMPAIRED HEALING [None]
  - OEDEMA PERIPHERAL [None]
  - POST PROCEDURAL PAIN [None]
  - TENDON DISORDER [None]
